FAERS Safety Report 9949746 (Version 1)
Quarter: 2014Q1

REPORT INFORMATION
  Report Type: Report from Study
  Country: US (occurrence: US)
  Receive Date: 20140304
  Receipt Date: 20140304
  Transmission Date: 20141002
  Serious: No
  Sender: FDA-Public Use
  Company Number: US-ABBVIE-13P-163-1070209-00

PATIENT
  Age: 49 Year
  Sex: Male
  Weight: 88.53 kg

DRUGS (4)
  1. HUMIRA [Suspect]
     Indication: PSORIASIS
  2. WELCHOL [Concomitant]
     Indication: BLOOD CHOLESTEROL INCREASED
  3. LOVAZA [Concomitant]
     Indication: BLOOD TRIGLYCERIDES INCREASED
  4. LISINOPRIL [Concomitant]
     Indication: HYPERTENSION

REACTIONS (2)
  - Blood cholesterol increased [Recovered/Resolved]
  - Hepatic enzyme increased [Recovered/Resolved]
